FAERS Safety Report 16211847 (Version 1)
Quarter: 2019Q2

REPORT INFORMATION
  Report Type: Spontaneous
  Country: JP (occurrence: JP)
  Receive Date: 20190418
  Receipt Date: 20190418
  Transmission Date: 20190711
  Serious: Yes (Other)
  Sender: FDA-Public Use
  Company Number: JP-BAYER-2019-073489

PATIENT
  Age: 25 Year
  Sex: Female

DRUGS (2)
  1. BAYASPIRIN 100 MG [Suspect]
     Active Substance: ASPIRIN
     Indication: COAGULATION FACTOR XII LEVEL DECREASED
     Route: 048
  2. BAYASPIRIN 100 MG [Suspect]
     Active Substance: ASPIRIN
     Indication: PROPHYLAXIS OF ABORTION

REACTIONS (5)
  - Off label use [None]
  - Product use in unapproved indication [None]
  - Oligohydramnios [None]
  - Caesarean section [None]
  - Maternal exposure during pregnancy [None]
